FAERS Safety Report 7757886-2 (Version None)
Quarter: 2011Q3

REPORT INFORMATION
  Report Type: 
  Country: None (occurrence: None)
  Receive Date: 20110918
  Receipt Date: 20110906
  Transmission Date: 20111222
  Serious: Yes (Other)
  Sender: FDA-Public Use
  Company Number: US-BRISTOL-MYERS SQUIBB COMPANY-16065344

PATIENT
  Sex: Male

DRUGS (4)
  1. METHOTREXATE [Interacting]
  2. PHENYTOIN [Interacting]
  3. CARMUSTINE [Suspect]
  4. VINBLASTINE SULFATE [Interacting]

REACTIONS (3)
  - DRUG INTERACTION [None]
  - PARTIAL SEIZURES [None]
  - DRUG LEVEL DECREASED [None]
